FAERS Safety Report 5564152-2 (Version None)
Quarter: 2007Q4

REPORT INFORMATION
  Report Type: 
  Country: None (occurrence: None)
  Receive Date: 20071217
  Receipt Date: 20071205
  Transmission Date: 20080405
  Serious: Yes (Other)
  Sender: FDA-Public Use
  Company Number: US-PFIZER INC-2007103697

PATIENT
  Sex: Female
  Weight: 79.8 kg

DRUGS (6)
  1. CHANTIX [Suspect]
     Indication: EX-SMOKER
  2. GABAPENTIN [Suspect]
     Indication: PAIN IN EXTREMITY
  3. ZYRTEC [Concomitant]
  4. NASONEX [Concomitant]
  5. COSOPT [Concomitant]
  6. NEXIUM [Concomitant]

REACTIONS (9)
  - CARPAL TUNNEL SYNDROME [None]
  - HYPOAESTHESIA [None]
  - IRRITABLE BOWEL SYNDROME [None]
  - MUSCULAR WEAKNESS [None]
  - MUSCULOSKELETAL STIFFNESS [None]
  - NAUSEA [None]
  - OVERDOSE [None]
  - PAIN IN EXTREMITY [None]
  - SOMNOLENCE [None]
